FAERS Safety Report 8091897-5 (Version None)
Quarter: 2012Q1

REPORT INFORMATION
  Report Type: 
  Country: None (occurrence: None)
  Receive Date: 20120129
  Receipt Date: 20111205
  Transmission Date: 20120608
  Serious: Yes (Hospitalization)
  Sender: FDA-Public Use
  Company Number: US-ABBOTT-11P-163-0881298-00

PATIENT
  Age: 62 Year
  Sex: Female

DRUGS (7)
  1. LIALDA [Concomitant]
     Indication: COLITIS ULCERATIVE
  2. AZOR [Concomitant]
     Indication: HYPERTENSION
  3. MYASTHENIA MEDS [Concomitant]
     Indication: MUSCULAR WEAKNESS
  4. ACTOS [Concomitant]
     Indication: DIABETES MELLITUS
  5. HUMIRA [Suspect]
     Indication: COLITIS ULCERATIVE
     Dates: start: 20111021
  6. ANTIBIOTIC [Concomitant]
     Indication: ENTEROCOLITIS INFECTIOUS
  7. CHOLESTYRAMINE [Concomitant]
     Indication: DIARRHOEA

REACTIONS (4)
  - DIARRHOEA [None]
  - WHITE BLOOD CELL COUNT INCREASED [None]
  - COLITIS [None]
  - RED BLOOD CELL COUNT DECREASED [None]
